FAERS Safety Report 23099285 (Version 2)
Quarter: 2024Q1

REPORT INFORMATION
  Report Type: Spontaneous
  Country: JP (occurrence: JP)
  Receive Date: 20231024
  Receipt Date: 20240219
  Transmission Date: 20240409
  Serious: Yes (Other)
  Sender: FDA-Public Use
  Company Number: JP-MSD-M2023-44342

PATIENT
  Age: 66 Year
  Sex: Male

DRUGS (1)
  1. KEYTRUDA [Suspect]
     Active Substance: PEMBROLIZUMAB
     Dosage: UNK
     Route: 041

REACTIONS (2)
  - Transfusion [Unknown]
  - Crossmatch incompatible [Unknown]
